FAERS Safety Report 24770729 (Version 2)
Quarter: 2024Q4

REPORT INFORMATION
  Report Type: Spontaneous
  Country: NP (occurrence: NP)
  Receive Date: 20241224
  Receipt Date: 20241230
  Transmission Date: 20250115
  Serious: Yes (Hospitalization)
  Sender: ACCORD
  Company Number: NP-Accord-460553

PATIENT
  Age: 19 Year
  Sex: Female

DRUGS (3)
  1. ATROPINE SULFATE [Suspect]
     Active Substance: ATROPINE SULFATE
     Indication: Chemical poisoning
     Route: 042
  2. PHENIRAMINE [Suspect]
     Active Substance: PHENIRAMINE
     Indication: Pyrexia
  3. HALOPERIDOL [Suspect]
     Active Substance: HALOPERIDOL
     Indication: Psychotic disorder

REACTIONS (3)
  - Pyrexia [Recovering/Resolving]
  - Substance-induced psychotic disorder [Recovering/Resolving]
  - Maternal exposure during pregnancy [Unknown]
